FAERS Safety Report 8399977-1 (Version None)
Quarter: 2012Q2

REPORT INFORMATION
  Report Type: 
  Country: None (occurrence: None)
  Receive Date: 20120531
  Receipt Date: 20120528
  Transmission Date: 20120825
  Serious: Yes (Death)
  Sender: FDA-Public Use
  Company Number: CA-BRISTOL-MYERS SQUIBB COMPANY-16635369

PATIENT
  Age: 69 Year
  Sex: Male

DRUGS (1)
  1. AZACTAM [Suspect]
     Indication: PSEUDOMONAS INFECTION

REACTIONS (1)
  - DEATH [None]
